FAERS Safety Report 10061259 (Version 2)
Quarter: 2014Q2

REPORT INFORMATION
  Report Type: Spontaneous
  Country: JP (occurrence: JP)
  Receive Date: 20140407
  Receipt Date: 20140417
  Transmission Date: 20141212
  Serious: Yes (Other)
  Sender: FDA-Public Use
  Company Number: JP-RANBAXY-2014RR-79701

PATIENT
  Age: 76 Year
  Sex: Male

DRUGS (5)
  1. PREDNISOLONE [Suspect]
     Indication: HYPOPHYSITIS
     Dosage: 20 MG/DAY
     Route: 048
  2. HYDROCORTISONE [Suspect]
     Indication: HYPOPHYSITIS
     Dosage: 20 MG/DAY
     Route: 065
  3. LEVOTHYROXINE [Concomitant]
     Indication: HYPOPHYSITIS
     Dosage: 25 UG/DAY
     Route: 065
  4. PREDNISOLONE [Suspect]
     Indication: HYPOPHYSITIS
     Dosage: 10 MG/DAY
     Route: 048
  5. INSULIN [Concomitant]
     Indication: DIABETES MELLITUS
     Dosage: UNK
     Route: 065
     Dates: start: 2005

REACTIONS (1)
  - Diabetes insipidus [Recovering/Resolving]
